FAERS Safety Report 16120662 (Version 5)
Quarter: 2019Q4

REPORT INFORMATION
  Report Type: Report from Study
  Country: US (occurrence: US)
  Receive Date: 20190327
  Receipt Date: 20191122
  Transmission Date: 20200122
  Serious: Yes (Hospitalization, Other)
  Sender: FDA-Public Use
  Company Number: PHEH2019US012497

PATIENT
  Sex: Male

DRUGS (2)
  1. ENTRESTO [Suspect]
     Active Substance: SACUBITRIL\VALSARTAN
     Dosage: 2 DF, BID
     Route: 048
  2. ENTRESTO [Suspect]
     Active Substance: SACUBITRIL\VALSARTAN
     Indication: EJECTION FRACTION DECREASED
     Dosage: UNK
     Route: 048
     Dates: start: 2018

REACTIONS (7)
  - Fall [Unknown]
  - Skin abrasion [Unknown]
  - Pulmonary oedema [Unknown]
  - Swelling [Unknown]
  - Product use in unapproved indication [Unknown]
  - Hip fracture [Unknown]
  - Femur fracture [Unknown]
